FAERS Safety Report 8516413-2 (Version None)
Quarter: 2012Q3

REPORT INFORMATION
  Report Type: 
  Country: None (occurrence: None)
  Receive Date: 20120718
  Receipt Date: 20120710
  Transmission Date: 20120928
  Serious: No
  Sender: FDA-Public Use
  Company Number: US-BIOGENIDEC-2012BI024778

PATIENT
  Sex: Female

DRUGS (3)
  1. AVONEX [Suspect]
     Route: 030
     Dates: start: 20030101, end: 20120601
  2. AVONEX [Suspect]
     Indication: MULTIPLE SCLEROSIS
     Route: 030
     Dates: start: 19980101, end: 20030101
  3. AVONEX [Suspect]
     Route: 030
     Dates: start: 20120701

REACTIONS (3)
  - FALL [None]
  - INFLUENZA LIKE ILLNESS [None]
  - CARPAL TUNNEL SYNDROME [None]
